FAERS Safety Report 5971054-6 (Version None)
Quarter: 2008Q4

REPORT INFORMATION
  Report Type: 
  Country: None (occurrence: None)
  Receive Date: 20081128
  Receipt Date: 20081126
  Transmission Date: 20090506
  Serious: Yes (Death, Other)
  Sender: FDA-Public Use
  Company Number: PHBS2008GB06457

PATIENT
  Sex: Female

DRUGS (2)
  1. SYNTOCINON [Suspect]
     Indication: LABOUR INDUCTION
     Route: 065
  2. BUPIVACAINE [Suspect]

REACTIONS (11)
  - ANAESTHETIC COMPLICATION [None]
  - BLOOD PRESSURE SYSTOLIC DECREASED [None]
  - BRADYCARDIA [None]
  - CAESAREAN SECTION [None]
  - CARDIAC ARREST [None]
  - DRUG EXPOSURE DURING PREGNANCY [None]
  - DYSPNOEA [None]
  - ENDOTRACHEAL INTUBATION [None]
  - HAEMORRHAGE [None]
  - LOSS OF CONSCIOUSNESS [None]
  - RESUSCITATION [None]
